FAERS Safety Report 12074840 (Version 1)
Quarter: 2016Q1

REPORT INFORMATION
  Report Type: Report from Study
  Country: US (occurrence: US)
  Receive Date: 20160212
  Receipt Date: 20160212
  Transmission Date: 20160526
  Serious: Yes (Other)
  Sender: FDA-Public Use
  Company Number: US-GILEAD-2016-0197212

PATIENT
  Age: 54 Year
  Sex: Male

DRUGS (1)
  1. EMTRICITABINE/TENOFOVIR DISOPROXIL FUMARATE [Suspect]
     Active Substance: EMTRICITABINE\TENOFOVIR DISOPROXIL
     Indication: CHRONIC HEPATITIS B
     Dosage: 500 MG, UNK
     Route: 048

REACTIONS (2)
  - Liver transplant [Unknown]
  - Off label use [Not Recovered/Not Resolved]
